FAERS Safety Report 13528021 (Version 1)
Quarter: 2017Q2

REPORT INFORMATION
  Report Type: Report from Study
  Country: CN (occurrence: CN)
  Receive Date: 20170509
  Receipt Date: 20170509
  Transmission Date: 20170830
  Serious: Yes (Death)
  Sender: FDA-Public Use
  Company Number: CN-INGENUS PHARMACEUTICALS NJ, LLC-ING201705-000220

PATIENT
  Age: 55 Year
  Sex: Male

DRUGS (8)
  1. METHADONE [Suspect]
     Active Substance: METHADONE HYDROCHLORIDE
  2. PHENOBARBITONE [Suspect]
     Active Substance: PHENOBARBITAL
  3. ALCOHOL. [Suspect]
     Active Substance: ALCOHOL
  4. CARISOPRODOL, ASPIRIN AND CODEINE PHOSPHATE [Suspect]
     Active Substance: ASPIRIN\CARISOPRODOL\CODEINE PHOSPHATE
  5. METHAMPHETAMINE [Suspect]
     Active Substance: METHAMPHETAMINE
  6. MONOACETYLMORPHINE [Suspect]
     Active Substance: 6-ACETYLMORPHINE
  7. MORPHINE [Suspect]
     Active Substance: MORPHINE
  8. PARACETAMOL [Suspect]
     Active Substance: ACETAMINOPHEN

REACTIONS (1)
  - Impaired driving ability [Fatal]
